FAERS Safety Report 14208079 (Version 3)
Quarter: 2017Q4

REPORT INFORMATION
  Report Type: Report from Study
  Country: CN (occurrence: CN)
  Receive Date: 20171121
  Receipt Date: 20171229
  Transmission Date: 20180321
  Serious: Yes (Death, Other)
  Sender: FDA-Public Use
  Company Number: PHHY2017CN171334

PATIENT
  Age: 69 Year
  Sex: Male

DRUGS (1)
  1. EXJADE [Suspect]
     Active Substance: DEFERASIROX
     Indication: PRODUCT USED FOR UNKNOWN INDICATION
     Dosage: 2010 MG, QD
     Route: 048
     Dates: start: 20170419

REACTIONS (11)
  - Dyspnoea [Unknown]
  - Haemorrhage intracranial [Unknown]
  - Death [Fatal]
  - Leukopenia [Unknown]
  - Thrombocytopenia [Unknown]
  - Platelet count decreased [Unknown]
  - Agranulocytosis [Unknown]
  - Anaemia [Unknown]
  - Fatigue [Unknown]
  - Neutropenia [Unknown]
  - Pallor [Unknown]

NARRATIVE: CASE EVENT DATE: 20171105
